FAERS Safety Report 11315526 (Version 2)
Quarter: 2015Q3

REPORT INFORMATION
  Report Type: Spontaneous
  Country: JP (occurrence: JP)
  Receive Date: 20150728
  Receipt Date: 20150811
  Transmission Date: 20151125
  Serious: Yes (Other)
  Sender: FDA-Public Use
  Company Number: JP-AMGEN-JPNSP2015075259

PATIENT
  Sex: Female

DRUGS (2)
  1. ENBREL [Suspect]
     Active Substance: ETANERCEPT
     Indication: RHEUMATOID ARTHRITIS
     Dosage: UNK
     Route: 058
     Dates: start: 20140716
  2. ENBREL [Suspect]
     Active Substance: ETANERCEPT
     Dosage: UNK
     Route: 058
     Dates: start: 20140730, end: 201502

REACTIONS (11)
  - Pain in extremity [Unknown]
  - Pneumonia [Unknown]
  - Injection site erythema [Unknown]
  - Asthma [Unknown]
  - Pyrexia [Unknown]
  - Rheumatoid arthritis [Unknown]
  - Weight decreased [Unknown]
  - Eczema [Unknown]
  - Condition aggravated [Unknown]
  - Injection site pruritus [Unknown]
  - Condition aggravated [Unknown]

NARRATIVE: CASE EVENT DATE: 20140723
